FAERS Safety Report 5376797-3 (Version None)
Quarter: 2007Q3

REPORT INFORMATION
  Report Type: 
  Country: None (occurrence: None)
  Receive Date: 20070703
  Receipt Date: 20070627
  Transmission Date: 20080115
  Serious: Yes (Hospitalization, Other)
  Sender: FDA-Public Use
  Company Number: PHHO2005IT18317

PATIENT
  Age: 79 Year
  Sex: Female
  Weight: 55 kg

DRUGS (4)
  1. TAMOXIFEN CITRATE [Suspect]
     Indication: BREAST CANCER
     Route: 048
     Dates: start: 20011119, end: 20051122
  2. DRONAL [Concomitant]
     Indication: OSTEOPOROSIS
     Dates: start: 20050301
  3. DIDROGYL [Concomitant]
     Indication: OSTEOPOROSIS
     Dates: start: 20030101
  4. FOSIPRES [Concomitant]
     Indication: HYPERTENSION

REACTIONS (7)
  - ANGIOPATHY [None]
  - APHASIA [None]
  - CONFUSIONAL STATE [None]
  - LACUNAR INFARCTION [None]
  - MOVEMENT DISORDER [None]
  - SPEECH DISORDER [None]
  - TRANSIENT ISCHAEMIC ATTACK [None]
